FAERS Safety Report 15375473 (Version 2)
Quarter: 2018Q4

REPORT INFORMATION
  Report Type: Spontaneous
  Country: RU (occurrence: RU)
  Receive Date: 20180912
  Receipt Date: 20181022
  Transmission Date: 20190204
  Serious: Yes (Hospitalization, Other)
  Sender: FDA-Public Use
  Company Number: RU-ASTRAZENECA-2018SE32083

PATIENT
  Age: 63 Year
  Sex: Female
  Weight: 63 kg

DRUGS (12)
  1. MOXONIDINE [Concomitant]
     Active Substance: MOXONIDINE
     Dates: start: 20170919
  2. LOZAP [Concomitant]
     Dates: start: 20170919
  3. LOSARTAN. [Concomitant]
     Active Substance: LOSARTAN
  4. BRILINTA [Suspect]
     Active Substance: TICAGRELOR
     Indication: STENT PLACEMENT
     Route: 048
     Dates: start: 20170919
  5. ASA [Concomitant]
     Active Substance: ASPIRIN
  6. VALSARTAN. [Concomitant]
     Active Substance: VALSARTAN
     Dates: start: 20180914
  7. THROMBO ASS [Concomitant]
     Active Substance: ASPIRIN
     Dates: start: 20180914
  8. BISOPROLOL [Concomitant]
     Active Substance: BISOPROLOL
     Dates: start: 20170919
  9. OMEPRAZOLE. [Concomitant]
     Active Substance: OMEPRAZOLE
     Dates: start: 20180918
  10. BRILINTA [Suspect]
     Active Substance: TICAGRELOR
     Indication: MYOCARDIAL INFARCTION
     Route: 048
     Dates: start: 20170919
  11. ATORVASTATIN [Concomitant]
     Active Substance: ATORVASTATIN
     Dates: start: 20170919
  12. AMLODIPIN [Concomitant]
     Active Substance: AMLODIPINE BESYLATE
     Dates: start: 20180914

REACTIONS (7)
  - Heart rate decreased [Not Recovered/Not Resolved]
  - Extrasystoles [Unknown]
  - Blood pressure increased [Not Recovered/Not Resolved]
  - Angina pectoris [Recovered/Resolved]
  - Increased tendency to bruise [Not Recovered/Not Resolved]
  - Bradyarrhythmia [Not Recovered/Not Resolved]
  - Chest pain [Not Recovered/Not Resolved]

NARRATIVE: CASE EVENT DATE: 201709
